APPROVED DRUG PRODUCT: IFOSFAMIDE
Active Ingredient: IFOSFAMIDE
Strength: 3GM/60ML (50MG/ML)
Dosage Form/Route: INJECTABLE;INJECTION
Application: A201689 | Product #002
Applicant: EXTROVIS AG
Approved: Nov 26, 2012 | RLD: No | RS: No | Type: DISCN